FAERS Safety Report 8896375 (Version 2)
Quarter: 2012Q4

REPORT INFORMATION
  Report Type: 
  Country: US (occurrence: None)
  Receive Date: 20121109
  Receipt Date: 20121127
  Transmission Date: 20130627
  Serious: Yes (Death, Life-Threatening)
  Sender: FDA-Public Use
  Company Number: None

PATIENT
  Age: 37 Year
  Sex: Male
  Weight: 74.39 kg

DRUGS (9)
  1. METHYLPREDNISONE [Suspect]
     Indication: HERNIATED NUCLEUS PULPOSUS
     Dosage: 80 mg once Epidural
     Route: 008
     Dates: start: 20120808, end: 20120808
  2. METHYLPREDNISONE [Suspect]
     Indication: LOW BACK PAIN
     Dosage: 80 mg once Epidural
     Route: 008
     Dates: start: 20120808, end: 20120808
  3. METHYLPREDNISONE [Suspect]
     Indication: RADICULOPATHY
     Dosage: 80 mg once Epidural
     Route: 008
     Dates: start: 20120808, end: 20120808
  4. CARDIZEM [Concomitant]
  5. HYDROCHLOROTHIAZIDE [Concomitant]
  6. LISINOPRIL [Concomitant]
  7. NITROGLYCERIN [Concomitant]
  8. ACETAMINOPHEN [Concomitant]
  9. IBUPROFEN [Concomitant]

REACTIONS (4)
  - Aspergillosis [None]
  - Meningitis fungal [None]
  - Arteriosclerosis coronary artery [None]
  - Product quality issue [None]
